FAERS Safety Report 8053868-4 (Version None)
Quarter: 2012Q1

REPORT INFORMATION
  Report Type: 
  Country: None (occurrence: None)
  Receive Date: 20120118
  Receipt Date: 20120116
  Transmission Date: 20120608
  Serious: Yes (Hospitalization, Other)
  Sender: FDA-Public Use
  Company Number: US-BAYER-2012-004859

PATIENT
  Age: 62 Year
  Sex: Female

DRUGS (5)
  1. BETASERON [Suspect]
     Dosage: UNK
     Dates: start: 20101001, end: 20101102
  2. BETASERON [Suspect]
     Indication: RELAPSING-REMITTING MULTIPLE SCLEROSIS
     Dosage: UNK
     Dates: start: 20091201, end: 20091228
  3. ANTICONVULSIVE [Concomitant]
  4. BETASERON [Suspect]
     Dosage: UNK
     Dates: start: 20100911, end: 20100915
  5. BETASERON [Suspect]
     Dosage: 8 MIU, QOD
     Route: 058
     Dates: start: 20110415, end: 20120109

REACTIONS (6)
  - MUSCULAR WEAKNESS [None]
  - CONVULSION [None]
  - FALL [None]
  - INCOHERENT [None]
  - MUSCULOSKELETAL STIFFNESS [None]
  - GRAND MAL CONVULSION [None]
